FAERS Safety Report 17860221 (Version 2)
Quarter: 2020Q4

REPORT INFORMATION
  Report Type: Spontaneous
  Country: CA (occurrence: CA)
  Receive Date: 20200604
  Receipt Date: 20201009
  Transmission Date: 20210113
  Serious: Yes (Other)
  Sender: FDA-Public Use
  Company Number: CA-CELGENEUS-CAN-20200600281

PATIENT
  Sex: Male

DRUGS (2)
  1. REVLIMID [Suspect]
     Active Substance: LENALIDOMIDE
     Indication: PLASMA CELL MYELOMA
     Dosage: 25 MILLIGRAM
     Route: 048
     Dates: start: 20191227, end: 20200604
  2. POMALYST [Suspect]
     Active Substance: POMALIDOMIDE
     Indication: PLASMA CELL MYELOMA
     Dosage: 4 MILLIGRAM
     Route: 048
     Dates: start: 20200616, end: 20201001

REACTIONS (7)
  - Hypersomnia [Unknown]
  - Influenza like illness [Unknown]
  - Abdominal pain upper [Unknown]
  - Plasmacytoma [Unknown]
  - Dyspepsia [Unknown]
  - Nasopharyngitis [Unknown]
  - Nausea [Unknown]
